FAERS Safety Report 22050231 (Version 1)
Quarter: 2023Q1

REPORT INFORMATION
  Report Type: Spontaneous
  Country: FR (occurrence: FR)
  Receive Date: 20230301
  Receipt Date: 20230301
  Transmission Date: 20230417
  Serious: Yes (Hospitalization, Other)
  Sender: FDA-Public Use
  Company Number: None

PATIENT
  Age: 43 Year
  Sex: Male

DRUGS (48)
  1. KEPPRA [Interacting]
     Active Substance: LEVETIRACETAM
     Indication: Epilepsy
     Dosage: 500 MG, BID
     Route: 048
     Dates: start: 20170422
  2. CELLCEPT [Suspect]
     Active Substance: MYCOPHENOLATE MOFETIL
     Indication: Prophylaxis against transplant rejection
     Dosage: 1000 MG, BID
     Route: 048
     Dates: start: 2017
  3. CELLCEPT [Suspect]
     Active Substance: MYCOPHENOLATE MOFETIL
     Indication: Prophylaxis against transplant rejection
     Dosage: 1000 MG, BID, 1000 MG, 2X/DAY(ONE TABLET ONCE IN THE MORNING AND ONCE IN THE EVENING)
     Route: 048
     Dates: start: 2017
  4. CANCIDAS [Suspect]
     Active Substance: CASPOFUNGIN ACETATE
     Indication: Fungal infection
     Dosage: 70 MG, 1D
     Route: 042
     Dates: start: 201703
  5. PHLOROGLUCINOL [Suspect]
     Active Substance: PHLOROGLUCINOL
     Indication: Pain
     Dosage: 2 DF, AS NEEDED (TWO TABLETS THREE TIMES DAILY IF ABDOMINAL PAIN)
     Route: 048
     Dates: start: 2017, end: 2017
  6. PHLOROGLUCINOL [Suspect]
     Active Substance: PHLOROGLUCINOL
     Indication: Abdominal pain
  7. PHLOROGLUCINOL\1,3,5-TRIMETHOXYBENZENE [Suspect]
     Active Substance: PHLOROGLUCINOL\1,3,5-TRIMETHOXYBENZENE
     Indication: Pain
     Dosage: 2 DF, Z
     Route: 048
     Dates: start: 2017
  8. PHLOROGLUCINOL\1,3,5-TRIMETHOXYBENZENE [Suspect]
     Active Substance: PHLOROGLUCINOL\1,3,5-TRIMETHOXYBENZENE
     Indication: Abdominal pain
  9. URAPIDIL [Suspect]
     Active Substance: URAPIDIL
     Indication: Hypertension
     Dosage: 2 MG, 24D
     Route: 042
     Dates: start: 201703, end: 20170330
  10. ZERBAXA [Suspect]
     Active Substance: CEFTOLOZANE SULFATE\TAZOBACTAM SODIUM
     Indication: Cellulitis
     Dosage: 3 G, TID
     Route: 042
     Dates: start: 20170331
  11. SODIUM ALGINATE\SODIUM BICARBONATE [Suspect]
     Active Substance: SODIUM ALGINATE\SODIUM BICARBONATE
     Indication: Gastrooesophageal reflux disease
     Dosage: 3 DF, DAILY
     Route: 048
     Dates: start: 2017, end: 2017
  12. CILASTATIN SODIUM\IMIPENEM [Suspect]
     Active Substance: CILASTATIN SODIUM\IMIPENEM
     Indication: Product used for unknown indication
     Dosage: 500 MG, TID
     Route: 042
     Dates: start: 201703, end: 20170403
  13. URSODIOL [Suspect]
     Active Substance: URSODIOL
     Indication: Product used for unknown indication
     Dosage: 200 MG
     Route: 048
     Dates: start: 20170331
  14. GANCICLOVIR [Suspect]
     Active Substance: GANCICLOVIR
     Indication: Prophylaxis
     Dosage: UNK
     Route: 042
     Dates: start: 20170330, end: 20170504
  15. BACTRIM [Suspect]
     Active Substance: SULFAMETHOXAZOLE\TRIMETHOPRIM
     Indication: Pneumocystis jirovecii pneumonia
     Dosage: 800 MG, 1D
     Route: 048
     Dates: start: 201703, end: 20170526
  16. MAGNESIUM ALGINATE\SODIUM ALGINATE [Suspect]
     Active Substance: MAGNESIUM ALGINATE\SODIUM ALGINATE
     Indication: Gastrooesophageal reflux disease
     Dosage: 1 DF, EVERY 8 HOURS
     Route: 048
     Dates: start: 2017
  17. HYDROCORTISONE ACETATE [Suspect]
     Active Substance: HYDROCORTISONE ACETATE
     Indication: Product used for unknown indication
     Dosage: UNK
  18. GAVISCON [Suspect]
     Active Substance: ALUMINUM HYDROXIDE\MAGNESIUM CARBONATE
     Indication: Gastrooesophageal reflux disease
     Dosage: 1 DF, Z
     Route: 048
     Dates: start: 2017
  19. NEORAL [Suspect]
     Active Substance: CYCLOSPORINE
     Indication: Prophylaxis against transplant rejection
     Dosage: 40 MG, BID
     Route: 048
     Dates: start: 2017
  20. GAVISCON [Suspect]
     Active Substance: ALUMINUM HYDROXIDE\MAGNESIUM CARBONATE
     Indication: Gastrooesophageal reflux disease
     Dosage: 3 DF, 3X/DAY  (IF NEEDED)
     Route: 048
     Dates: start: 2017, end: 2017
  21. GAVISCON [Suspect]
     Active Substance: ALUMINUM HYDROXIDE\MAGNESIUM CARBONATE
     Dosage: 3 DF, 1X/DAY IF NECESSARY
     Route: 048
     Dates: start: 2017, end: 2017
  22. ACETAMINOPHEN [Suspect]
     Active Substance: ACETAMINOPHEN
     Indication: Pyrexia
     Dosage: 1 G, Z
     Route: 048
     Dates: start: 2017
  23. ACETAMINOPHEN [Suspect]
     Active Substance: ACETAMINOPHEN
     Indication: Pain
     Dosage: 3 G, 1X/DAY (IF PAIN OR FEVER)
     Route: 048
     Dates: start: 2017, end: 2017
  24. AMIKACIN [Suspect]
     Active Substance: AMIKACIN
     Indication: Product used for unknown indication
     Dosage: UNK
     Route: 042
     Dates: end: 20170610
  25. AMIKACIN [Suspect]
     Active Substance: AMIKACIN
     Indication: Pain
     Dosage: 20 MG, 4X/DAY
     Dates: start: 2017
  26. AMIKACIN [Suspect]
     Active Substance: AMIKACIN
     Dosage: UNK
     Route: 042
     Dates: start: 20170403, end: 20170408
  27. AMIKACIN [Suspect]
     Active Substance: AMIKACIN
     Dosage: UNK
     Route: 042
     Dates: start: 20170421, end: 20170424
  28. AMIKACIN [Suspect]
     Active Substance: AMIKACIN
     Dosage: UNK
     Route: 042
     Dates: start: 20170607, end: 20170610
  29. AMIKACIN [Suspect]
     Active Substance: AMIKACIN
     Dosage: UNK
     Route: 042
     Dates: start: 20170526, end: 20170529
  30. EUPANTOL [Suspect]
     Active Substance: PANTOPRAZOLE SODIUM
     Indication: Gastrooesophageal reflux disease
     Dosage: 40 MG, 1D
     Route: 042
     Dates: start: 2017
  31. LINEZOLID [Suspect]
     Active Substance: LINEZOLID
     Indication: Product used for unknown indication
     Dosage: 600 MG, BID
     Route: 042
     Dates: start: 201703, end: 20170430
  32. RACECADOTRIL [Suspect]
     Active Substance: RACECADOTRIL
     Indication: Diarrhoea
     Dosage: 200 MG, TID
     Route: 048
     Dates: start: 2017
  33. AMINO ACIDS\DEXTROSE\ELECTROLYTES NOS\SOYBEAN OIL [Suspect]
     Active Substance: AMINO ACIDS\DEXTROSE\ELECTROLYTES NOS\SOYBEAN OIL
     Indication: Parenteral nutrition
     Dosage: 80 ML, 24D
     Route: 042
     Dates: start: 2017, end: 2017
  34. ACUPAN [Suspect]
     Active Substance: NEFOPAM HYDROCHLORIDE
     Indication: Pain
     Dosage: 20 MG, Z
     Route: 042
     Dates: start: 2017
  35. POTASSIUM BICARBONATE\SODIUM ALGINATE [Suspect]
     Active Substance: POTASSIUM BICARBONATE\SODIUM ALGINATE
     Indication: Gastrooesophageal reflux disease
     Dosage: UNK UNK, TID
     Route: 048
     Dates: start: 2017
  36. DITROPAN [Suspect]
     Active Substance: OXYBUTYNIN CHLORIDE
     Indication: Product used for unknown indication
     Dosage: 5 MG, TID
     Route: 048
     Dates: start: 2017
  37. SOLU-MEDROL [Suspect]
     Active Substance: METHYLPREDNISOLONE SODIUM SUCCINATE
     Indication: Product used for unknown indication
     Dosage: 160 MG, 1D
     Route: 042
     Dates: start: 2017
  38. SOLU-MEDROL [Suspect]
     Active Substance: METHYLPREDNISOLONE SODIUM SUCCINATE
     Dosage: 160 MG, QD
     Route: 042
     Dates: start: 2017
  39. VALACYCLOVIR HYDROCHLORIDE [Suspect]
     Active Substance: VALACYCLOVIR HYDROCHLORIDE
     Indication: Prophylaxis
     Dosage: UNK
     Route: 048
     Dates: start: 20170504
  40. BISOPROLOL [Concomitant]
     Active Substance: BISOPROLOL
     Indication: Prophylaxis
     Dosage: UNK
     Route: 048
     Dates: start: 20170531
  41. CELLCEPT [Concomitant]
     Active Substance: MYCOPHENOLATE MOFETIL
     Indication: Prophylaxis against transplant rejection
     Dosage: 2000 MG, 1X/DAY
     Route: 048
     Dates: start: 2017
  42. TARGOCID [Concomitant]
     Active Substance: TEICOPLANIN
     Indication: Product used for unknown indication
     Dosage: UNK
     Dates: start: 20170524, end: 20170529
  43. ATOVAQUONE [Concomitant]
     Active Substance: ATOVAQUONE
     Indication: Product used for unknown indication
     Dosage: UNK
     Dates: start: 20170526
  44. AMLODIPINE BESYLATE [Concomitant]
     Active Substance: AMLODIPINE BESYLATE
     Indication: Epilepsy
     Dosage: 1000 MG, QD
     Route: 048
     Dates: start: 20170526, end: 20170531
  45. URAPIDIL [Concomitant]
     Active Substance: URAPIDIL
     Indication: Product used for unknown indication
     Dosage: 48 MG, QD, 48 MG, DAILY (2 MG PER HOUR)
     Dates: start: 201703, end: 20170330
  46. RAMIPRIL [Concomitant]
     Active Substance: RAMIPRIL
     Indication: Prophylaxis against transplant rejection
     Dosage: 2000 MG, QD
     Route: 048
     Dates: start: 20170531
  47. VANCOMYCIN [Concomitant]
     Active Substance: VANCOMYCIN
     Indication: Product used for unknown indication
     Dosage: UNK
     Dates: start: 20170529
  48. HYDROCORTISONE [Concomitant]
     Active Substance: HYDROCORTISONE
     Indication: Product used for unknown indication
     Dosage: UNK

REACTIONS (4)
  - Confusional state [Recovering/Resolving]
  - Pancytopenia [Recovered/Resolved]
  - Amnesia [Recovering/Resolving]
  - Drug interaction [Unknown]

NARRATIVE: CASE EVENT DATE: 20170329
